FAERS Safety Report 20325469 (Version 1)
Quarter: 2022Q1

REPORT INFORMATION
  Report Type: Spontaneous
  Country: BR (occurrence: BR)
  Receive Date: 20220112
  Receipt Date: 20220112
  Transmission Date: 20220423
  Serious: Yes (Other)
  Sender: FDA-Public Use
  Company Number: BR-009507513-2111BRA007741

PATIENT
  Age: 81 Year
  Sex: Female

DRUGS (1)
  1. KEYTRUDA [Suspect]
     Active Substance: PEMBROLIZUMAB
     Indication: Head and neck cancer
     Dosage: 200 MG EVERY 21 DAYS
     Route: 042
     Dates: start: 20210414, end: 20211007

REACTIONS (2)
  - Optic neuritis [Not Recovered/Not Resolved]
  - Amaurosis [Not Recovered/Not Resolved]

NARRATIVE: CASE EVENT DATE: 20210101
